FAERS Safety Report 23080603 (Version 3)
Quarter: 2023Q4

REPORT INFORMATION
  Report Type: Spontaneous
  Country: US (occurrence: US)
  Receive Date: 20231018
  Receipt Date: 20231023
  Transmission Date: 20240110
  Serious: No
  Sender: FDA-Public Use
  Company Number: US-PFIZER INC-PV202300170855

PATIENT
  Age: 83 Year
  Sex: Male

DRUGS (2)
  1. RETACRIT [Suspect]
     Active Substance: EPOETIN ALFA-EPBX
     Dosage: UNK
  2. TALZENNA [Concomitant]
     Active Substance: TALAZOPARIB TOSYLATE
     Dosage: 0.5 MG (2 CAPSULES), DAILY AS DIRECTED FOR 30 DAYS
     Route: 048

REACTIONS (1)
  - Gene mutation identification test positive [Unknown]
